FAERS Safety Report 23022283 (Version 7)
Quarter: 2024Q1

REPORT INFORMATION
  Report Type: Spontaneous
  Country: US (occurrence: US)
  Receive Date: 20231003
  Receipt Date: 20240222
  Transmission Date: 20240410
  Serious: No
  Sender: FDA-Public Use
  Company Number: US-BRISTOL-MYERS SQUIBB COMPANY-2023-139811

PATIENT
  Age: 71 Year
  Sex: Female

DRUGS (2)
  1. CAMZYOS [Suspect]
     Active Substance: MAVACAMTEN
     Indication: Hypertrophic cardiomyopathy
     Route: 048
  2. PREDNISONE [Suspect]
     Active Substance: PREDNISONE
     Indication: Product used for unknown indication

REACTIONS (7)
  - Ear infection [Unknown]
  - Neck pain [Unknown]
  - Alopecia [Unknown]
  - Abdominal discomfort [Unknown]
  - Back pain [Unknown]
  - Inflammation [Unknown]
  - Blood glucose abnormal [Recovered/Resolved]
